FAERS Safety Report 25095230 (Version 1)
Quarter: 2025Q1

REPORT INFORMATION
  Report Type: Spontaneous
  Country: US (occurrence: US)
  Receive Date: 20250319
  Receipt Date: 20250319
  Transmission Date: 20250409
  Serious: No
  Sender: GALDERMA
  Company Number: US-GALDERMA-US2024017658

PATIENT

DRUGS (7)
  1. PROACTIV MD ADAPALENE ACNE TREATMENT [Suspect]
     Active Substance: ADAPALENE
     Indication: Product used for unknown indication
     Route: 061
     Dates: start: 202409
  2. PROACTIV CLEAR SKIN SPF 30 [Concomitant]
     Active Substance: AVOBENZONE\OCTISALATE\OCTOCRYLENE
     Indication: Product used for unknown indication
     Route: 061
     Dates: start: 202409
  3. Proactiv Clean Azelaic Pore Perfector [Concomitant]
     Indication: Product used for unknown indication
     Route: 061
     Dates: start: 202409
  4. PROACTIV CLEAN MINERAL ACNE CLEANSER [Concomitant]
     Active Substance: SULFUR
     Indication: Product used for unknown indication
     Route: 061
     Dates: start: 202409
  5. PROACTIV CLEAN ACNE CLEARING HYDRATOR [Concomitant]
     Active Substance: SALICYLIC ACID
     Indication: Product used for unknown indication
     Route: 061
     Dates: start: 202409
  6. Proactiv Post Blemish 10% Vitamin C Serum [Concomitant]
     Indication: Product used for unknown indication
     Route: 061
     Dates: start: 202409
  7. Proactiv Zits Happen Patches [Concomitant]
     Indication: Product used for unknown indication
     Route: 061
     Dates: start: 202409

REACTIONS (4)
  - Erythema [Unknown]
  - Condition aggravated [Unknown]
  - Rash papular [Unknown]
  - Drug ineffective [Unknown]

NARRATIVE: CASE EVENT DATE: 20240101
